FAERS Safety Report 24611397 (Version 4)
Quarter: 2024Q4

REPORT INFORMATION
  Report Type: Report from Study
  Country: GB (occurrence: GB)
  Receive Date: 20241113
  Receipt Date: 20241212
  Transmission Date: 20250115
  Serious: Yes (Other)
  Sender: UCB
  Company Number: GB-UCBSA-2024056639

PATIENT
  Sex: Female

DRUGS (1)
  1. CERTOLIZUMAB PEGOL [Suspect]
     Active Substance: CERTOLIZUMAB PEGOL
     Indication: Rheumatoid arthritis
     Dosage: 200 MILLIGRAM, EV 2 WEEKS(QOW)
     Route: 058
     Dates: start: 20210121

REACTIONS (5)
  - Rheumatoid arthritis [Not Recovered/Not Resolved]
  - Alopecia [Unknown]
  - Product dose omission issue [Unknown]
  - Therapy interrupted [Unknown]
  - Product prescribing issue [Unknown]
